FAERS Safety Report 16498854 (Version 1)
Quarter: 2019Q2

REPORT INFORMATION
  Report Type: Spontaneous
  Country: US (occurrence: US)
  Receive Date: 20190520
  Receipt Date: 20190520
  Transmission Date: 20190711
  Serious: Yes (Death)
  Sender: FDA-Public Use
  Company Number: None

PATIENT
  Age: 45 Year
  Sex: Female
  Weight: 53.2 kg

DRUGS (5)
  1. MIRALAX [Concomitant]
     Active Substance: POLYETHYLENE GLYCOL 3350
  2. NIFEDIPINE. [Concomitant]
     Active Substance: NIFEDIPINE
  3. AMBIEN [Suspect]
     Active Substance: ZOLPIDEM TARTRATE
     Indication: INSOMNIA
     Dosage: ?          OTHER FREQUENCY:QHS;?
     Route: 048
     Dates: start: 20190427, end: 20190501
  4. VENLAFAXINE-XR [Concomitant]
  5. MELATONIN [Concomitant]
     Active Substance: MELATONIN

REACTIONS (2)
  - Asphyxia [None]
  - Completed suicide [None]

NARRATIVE: CASE EVENT DATE: 20190501
